FAERS Safety Report 4664326-9 (Version None)
Quarter: 2005Q2

REPORT INFORMATION
  Report Type: 
  Country: None (occurrence: None)
  Receive Date: 20050518
  Receipt Date: 20050506
  Transmission Date: 20051028
  Serious: Yes (Hospitalization)
  Sender: FDA-Public Use
  Company Number: US-KINGPHARMUSA00001-K200500597

PATIENT
  Age: 77 Year
  Sex: Male

DRUGS (3)
  1. ALTACE [Suspect]
     Dosage: 1.25 MG, BID
     Route: 048
  2. CEFTRIAXONE [Suspect]
     Indication: BRONCHITIS ACUTE
     Dosage: 1 G, QD
     Route: 030
     Dates: start: 20041220, end: 20041223
  3. LASILIX [Concomitant]
     Dosage: 20 MG, QD
     Route: 048

REACTIONS (2)
  - RENAL FAILURE ACUTE [None]
  - RHABDOMYOLYSIS [None]
